FAERS Safety Report 17031987 (Version 1)
Quarter: 2019Q4

REPORT INFORMATION
  Report Type: Spontaneous
  Country: US (occurrence: US)
  Receive Date: 20191114
  Receipt Date: 20191114
  Transmission Date: 20200122
  Serious: No
  Sender: FDA-Public Use
  Company Number: US-LUNDBECK-DKLU3006883

PATIENT
  Age: 76 Year
  Sex: Male

DRUGS (3)
  1. CARBIDOPA. [Concomitant]
     Active Substance: CARBIDOPA
     Route: 065
  2. CARBIDOPA. [Concomitant]
     Active Substance: CARBIDOPA
     Indication: PRODUCT USED FOR UNKNOWN INDICATION
     Route: 065
  3. NORTHERA [Suspect]
     Active Substance: DROXIDOPA
     Indication: PARKINSON^S DISEASE
     Dosage: TITRATION COMPLETE
     Route: 065
     Dates: start: 201510

REACTIONS (4)
  - Musculoskeletal pain [Unknown]
  - Hypotension [Unknown]
  - Product dose omission [Unknown]
  - Dizziness [Unknown]

NARRATIVE: CASE EVENT DATE: 20191031
